FAERS Safety Report 6178365-2 (Version None)
Quarter: 2009Q2

REPORT INFORMATION
  Report Type: 
  Country: None (occurrence: None)
  Receive Date: 20090504
  Receipt Date: 20090430
  Transmission Date: 20091009
  Serious: No
  Sender: FDA-Public Use
  Company Number: US-B.I. PHARMACEUTICALS,INC./RIDGEFIELD-2009-BP-05497BP

PATIENT

DRUGS (3)
  1. ZANTAC 150 [Suspect]
  2. ZANTAC 75 [Suspect]
  3. ZANTAC [Suspect]

REACTIONS (1)
  - PNEUMONIA [None]
